FAERS Safety Report 9947529 (Version 1)
Quarter: 2014Q1

REPORT INFORMATION
  Report Type: Report from Study
  Country: US (occurrence: US)
  Receive Date: 20140303
  Receipt Date: 20140303
  Transmission Date: 20141002
  Serious: No
  Sender: FDA-Public Use
  Company Number: US-ABBVIE-13P-163-1062402-00

PATIENT
  Age: 43 Year
  Sex: Female

DRUGS (5)
  1. HUMIRA [Suspect]
     Indication: CROHN^S DISEASE
     Route: 058
     Dates: start: 20130302
  2. PENTASA [Concomitant]
     Indication: CROHN^S DISEASE
  3. FOLIC ACID [Concomitant]
     Indication: PRODUCT USED FOR UNKNOWN INDICATION
  4. UNKNOWN MED FOR HIGH BLOOD PRESSURE [Concomitant]
     Indication: HYPERTENSION
  5. CELEXA [Concomitant]
     Indication: DEPRESSION

REACTIONS (2)
  - Malaise [Recovered/Resolved]
  - Sickle cell anaemia with crisis [Recovering/Resolving]
